FAERS Safety Report 7205932-7 (Version None)
Quarter: 2011Q1

REPORT INFORMATION
  Report Type: 
  Country: None (occurrence: None)
  Receive Date: 20110103
  Receipt Date: 20101228
  Transmission Date: 20110831
  Serious: Yes (Death, Hospitalization)
  Sender: FDA-Public Use
  Company Number: FR-BIOGENIDEC-2010BI033455

PATIENT
  Age: 52 Year
  Sex: Male

DRUGS (3)
  1. LAROXYL [Concomitant]
  2. NEURONTIN [Concomitant]
  3. TYSABRI [Suspect]
     Indication: MULTIPLE SCLEROSIS
     Route: 042
     Dates: start: 20071211, end: 20080625

REACTIONS (2)
  - LUNG SQUAMOUS CELL CARCINOMA STAGE UNSPECIFIED [None]
  - CHRONIC LYMPHOCYTIC LEUKAEMIA [None]
